FAERS Safety Report 6855762-0 (Version None)
Quarter: 2010Q3

REPORT INFORMATION
  Report Type: 
  Country: None (occurrence: None)
  Receive Date: 20100719
  Receipt Date: 20100706
  Transmission Date: 20110219
  Serious: Yes (Other)
  Sender: FDA-Public Use
  Company Number: BE-ELI_LILLY_AND_COMPANY-BE201007001312

PATIENT
  Sex: Female

DRUGS (1)
  1. FORTEO [Suspect]
     Dosage: HALF INJECTION, DAILY (1/D)
     Route: 065
     Dates: start: 20100614

REACTIONS (3)
  - HIP FRACTURE [None]
  - INTENTIONAL DRUG MISUSE [None]
  - PAIN IN EXTREMITY [None]
